FAERS Safety Report 4312372-7 (Version None)
Quarter: 2004Q1

REPORT INFORMATION
  Report Type: 
  Country: None (occurrence: None)
  Receive Date: 20040303
  Receipt Date: 20040218
  Transmission Date: 20041129
  Serious: Yes (Other)
  Sender: FDA-Public Use
  Company Number: 2004011316

PATIENT
  Age: 64 Year
  Sex: Female
  Weight: 63 kg

DRUGS (1)
  1. REGAINE (MINOXIDIL) [Suspect]
     Indication: ALOPECIA
     Dosage: AMOUNT UNSPECIFIED, TOPICAL
     Route: 061
     Dates: start: 20040112, end: 20040117

REACTIONS (3)
  - ANGIONEUROTIC OEDEMA [None]
  - ECZEMA [None]
  - PRURITUS [None]
